FAERS Safety Report 5484548-7 (Version None)
Quarter: 2007Q4

REPORT INFORMATION
  Report Type: 
  Country: None (occurrence: None)
  Receive Date: 20071012
  Receipt Date: 20071001
  Transmission Date: 20080405
  Serious: Yes (Other)
  Sender: FDA-Public Use
  Company Number: GB-PFIZER INC-2007083205

PATIENT

DRUGS (1)
  1. EPANUTIN SUSPENSION [Suspect]

REACTIONS (2)
  - ENTERAL NUTRITION [None]
  - GASTROINTESTINAL TUBE INSERTION [None]
